FAERS Safety Report 4524095-X (Version None)
Quarter: 2004Q4

REPORT INFORMATION
  Report Type: 
  Country: None (occurrence: None)
  Receive Date: 20041209
  Receipt Date: 20041126
  Transmission Date: 20050328
  Serious: Yes (Hospitalization)
  Sender: FDA-Public Use
  Company Number: 2004104185

PATIENT
  Sex: Female

DRUGS (1)
  1. SORTIS (ATORVASTATIN) [Suspect]
     Indication: ILL-DEFINED DISORDER
     Dosage: ORAL
     Route: 048

REACTIONS (6)
  - ANHEDONIA [None]
  - ASTHENIA [None]
  - DYSPNOEA [None]
  - INFLAMMATION [None]
  - LUNG DISORDER [None]
  - LYMPHADENOPATHY [None]
